FAERS Safety Report 21593720 (Version 1)
Quarter: 2022Q4

REPORT INFORMATION
  Report Type: Spontaneous
  Country: US (occurrence: None)
  Receive Date: 20221114
  Receipt Date: 20221114
  Transmission Date: 20230112
  Serious: Yes (Hospitalization)
  Sender: FDA-Public Use
  Company Number: None

PATIENT
  Sex: Male

DRUGS (1)
  1. DROXIDOPA [Suspect]
     Active Substance: DROXIDOPA
     Indication: Parkinson^s disease
     Dosage: DOSAGE: 6 CAPSULES A DAY, BY MOUTH
     Route: 048
     Dates: start: 20191217

REACTIONS (2)
  - Urinary tract infection [None]
  - Somnolence [None]
